FAERS Safety Report 6057142-7 (Version None)
Quarter: 2009Q1

REPORT INFORMATION
  Report Type: 
  Country: None (occurrence: None)
  Receive Date: 20090129
  Receipt Date: 20090122
  Transmission Date: 20090719
  Serious: Yes (Death, Hospitalization)
  Sender: FDA-Public Use
  Company Number: JP-MERCK-0810USA03878

PATIENT
  Age: 91 Year
  Sex: Female
  Weight: 45 kg

DRUGS (15)
  1. STROMECTOL [Suspect]
     Indication: ACARODERMATITIS
     Route: 048
     Dates: start: 20080712, end: 20080712
  2. STROMECTOL [Suspect]
     Route: 048
     Dates: start: 20080719, end: 20080719
  3. CRAVIT [Concomitant]
     Indication: URINARY TRACT INFECTION
     Route: 048
  4. LASIX [Concomitant]
     Indication: OEDEMA
     Route: 048
     Dates: start: 20080927, end: 20081008
  5. LASIX [Concomitant]
     Indication: VENTRICULAR FAILURE
     Route: 048
     Dates: start: 20080927, end: 20081008
  6. ORACEF [Concomitant]
     Indication: URINARY TRACT INFECTION
     Route: 048
  7. CLARITIN REDITABS [Concomitant]
     Indication: PRURITUS
     Route: 048
     Dates: start: 20080825, end: 20081008
  8. ALDACTONE [Concomitant]
     Indication: OEDEMA
     Route: 048
     Dates: start: 20080927, end: 20081008
  9. SLOW-K [Concomitant]
     Indication: HYPOKALAEMIA
     Route: 048
     Dates: start: 20081002, end: 20081008
  10. RANITAC [Concomitant]
     Indication: GASTRITIS
     Route: 048
     Dates: start: 20081003, end: 20081008
  11. ASPIRIN [Concomitant]
     Indication: ARTERIAL THROMBOSIS LIMB
     Route: 048
  12. LASIX [Concomitant]
     Indication: OEDEMA
     Route: 042
     Dates: start: 20080919, end: 20080927
  13. LASIX [Concomitant]
     Indication: VENTRICULAR FAILURE
     Route: 042
     Dates: start: 20080919, end: 20080927
  14. TEXMETEN [Concomitant]
     Indication: DRUG ERUPTION
     Route: 061
     Dates: start: 20081007
  15. TEXMETEN [Concomitant]
     Indication: TOXIC SKIN ERUPTION
     Route: 061
     Dates: start: 20081007

REACTIONS (9)
  - CARDIAC FAILURE CHRONIC [None]
  - CARDIO-RESPIRATORY ARREST [None]
  - CONDITION AGGRAVATED [None]
  - DRUG ERUPTION [None]
  - ECZEMA ASTEATOTIC [None]
  - ERYTHEMA [None]
  - MYOCARDIAL INFARCTION [None]
  - OVERDOSE [None]
  - PERIPHERAL ARTERIAL OCCLUSIVE DISEASE [None]
